FAERS Safety Report 17449030 (Version 4)
Quarter: 2022Q1

REPORT INFORMATION
  Report Type: Report from Study
  Country: US (occurrence: None)
  Receive Date: 20200224
  Receipt Date: 20220118
  Transmission Date: 20220424
  Serious: Yes (Death, Life-Threatening)
  Sender: FDA-Public Use
  Company Number: US-ROCHE-2539535

PATIENT
  Age: 57 Year
  Sex: Female
  Weight: 54.1 kg

DRUGS (18)
  1. ATEZOLIZUMAB [Suspect]
     Active Substance: ATEZOLIZUMAB
     Indication: Triple negative breast cancer
     Dosage: OVER 30 - 60 MINUTES ON DAY 1.
     Route: 042
     Dates: start: 20191205, end: 20191227
  2. ATEZOLIZUMAB [Suspect]
     Active Substance: ATEZOLIZUMAB
     Indication: Breast cancer
  3. OLAPARIB [Suspect]
     Active Substance: OLAPARIB
     Indication: Triple negative breast cancer
     Dosage: LAST ADMINISTERED DOSAGE DATE: 26/DEC/2019
     Route: 042
     Dates: start: 20191205, end: 20191227
  4. OLAPARIB [Suspect]
     Active Substance: OLAPARIB
     Indication: Breast cancer
  5. DOCUSATE SODIUM [Concomitant]
     Active Substance: DOCUSATE SODIUM
  6. TRAMADOL [Concomitant]
     Active Substance: TRAMADOL
  7. BIOTIN [Concomitant]
     Active Substance: BIOTIN
  8. ACETAMINOPHEN [Concomitant]
     Active Substance: ACETAMINOPHEN
  9. HERBALS\TURMERIC [Concomitant]
     Active Substance: HERBALS\TURMERIC
  10. SELENIUM [Concomitant]
     Active Substance: SELENIUM
  11. MAGNESIUM [Concomitant]
     Active Substance: MAGNESIUM
  12. LORATADINE [Concomitant]
     Active Substance: LORATADINE
  13. SERTRALINE [Concomitant]
     Active Substance: SERTRALINE HYDROCHLORIDE
  14. NAPROXEN [Concomitant]
     Active Substance: NAPROXEN
  15. AMPHETAMINE;DEXTROAMPHETAMINE [Concomitant]
  16. CALCIUM CARBONATE [Concomitant]
     Active Substance: CALCIUM CARBONATE
  17. IBUPROFEN [Concomitant]
     Active Substance: IBUPROFEN
  18. MORPHINE [Concomitant]
     Active Substance: MORPHINE

REACTIONS (2)
  - Haemorrhage intracranial [Fatal]
  - Respiratory failure [Unknown]

NARRATIVE: CASE EVENT DATE: 20191230
